FAERS Safety Report 11454041 (Version 2)
Quarter: 2015Q4

REPORT INFORMATION
  Report Type: Spontaneous
  Country: US (occurrence: US)
  Receive Date: 20150903
  Receipt Date: 20151009
  Transmission Date: 20160304
  Serious: Yes (Death, Hospitalization, Other)
  Sender: FDA-Public Use
  Company Number: US-009507513-1509USA001256

PATIENT
  Sex: Male
  Weight: 84.35 kg

DRUGS (1)
  1. JANUVIA [Suspect]
     Active Substance: SITAGLIPTIN PHOSPHATE
     Indication: TYPE 2 DIABETES MELLITUS
     Dosage: 100 MG, QD
     Route: 048
     Dates: start: 20101019, end: 20141105

REACTIONS (16)
  - Oesophageal stenosis [Unknown]
  - Adenocarcinoma pancreas [Fatal]
  - Basal cell carcinoma [Unknown]
  - Prostate cancer [Unknown]
  - Bile duct stenosis [Unknown]
  - Sputum increased [Unknown]
  - Gastric ulcer [Unknown]
  - Duodenal ulcer [Unknown]
  - Actinic keratosis [Unknown]
  - Radical prostatectomy [Unknown]
  - Haematuria [Unknown]
  - Gastritis [Unknown]
  - Bladder cancer [Unknown]
  - Squamous cell carcinoma of skin [Unknown]
  - Nephrolithiasis [Recovered/Resolved]
  - Duodenitis [Unknown]

NARRATIVE: CASE EVENT DATE: 2010
